FAERS Safety Report 13107756 (Version 5)
Quarter: 2023Q2

REPORT INFORMATION
  Report Type: Other
  Country: IT (occurrence: IT)
  Receive Date: 20170112
  Receipt Date: 20230524
  Transmission Date: 20230722
  Serious: Yes (Death, Other)
  Sender: FDA-Public Use
  Company Number: US-ROCHE-1638201

PATIENT

DRUGS (3)
  1. RITUXIMAB [Suspect]
     Active Substance: RITUXIMAB
     Indication: Mantle cell lymphoma
     Route: 042
  2. CYTARABINE [Suspect]
     Active Substance: CYTARABINE
     Indication: Mantle cell lymphoma
     Dosage: DAYS 2 TO 4 IN EVERY 4 WEEKS
     Route: 042
  3. BENDAMUSTINE [Suspect]
     Active Substance: BENDAMUSTINE
     Indication: Mantle cell lymphoma
     Dosage: DAYS 2 AND 3 IN EVERY 4 WEEKS
     Route: 042

REACTIONS (21)
  - Myocardial infarction [Unknown]
  - Cerebral ischaemia [Unknown]
  - Leukopenia [Recovering/Resolving]
  - Febrile neutropenia [Recovering/Resolving]
  - Thrombocytopenia [Recovering/Resolving]
  - Anaemia [Recovering/Resolving]
  - Neutropenia [Recovering/Resolving]
  - Tumour lysis syndrome [Unknown]
  - Infusion related reaction [Unknown]
  - Fatigue [Unknown]
  - Herpes zoster reactivation [Unknown]
  - Cytomegalovirus infection reactivation [Unknown]
  - Fungal infection [Unknown]
  - Pseudomonal sepsis [Unknown]
  - Staphylococcal sepsis [Unknown]
  - Atrial fibrillation [Unknown]
  - Chest pain [Unknown]
  - Alanine aminotransferase increased [Unknown]
  - Aspartate aminotransferase increased [Unknown]
  - Septic shock [Fatal]
  - Sepsis [Fatal]
